FAERS Safety Report 24748084 (Version 1)
Quarter: 2024Q4

REPORT INFORMATION
  Report Type: Report from Study
  Country: CN (occurrence: CN)
  Receive Date: 20241218
  Receipt Date: 20241218
  Transmission Date: 20250115
  Serious: Yes (Life-Threatening, Other)
  Sender: RANBAXY
  Company Number: CN-SUN PHARMACEUTICAL INDUSTRIES LTD-2024R1-484918

PATIENT
  Age: 22 Year
  Sex: Male

DRUGS (6)
  1. CISPLATIN [Suspect]
     Active Substance: CISPLATIN
     Indication: Natural killer-cell leukaemia
     Dosage: 20 MILLIGRAM/SQ. METER
     Route: 042
  2. DEXAMETHASONE [Suspect]
     Active Substance: DEXAMETHASONE
     Indication: Natural killer-cell leukaemia
     Dosage: 15 MILLIGRAM/SQ. METER
     Route: 065
  3. GEMCITABINE [Suspect]
     Active Substance: GEMCITABINE
     Indication: Natural killer-cell leukaemia
     Dosage: 0.5 MILLIGRAM/SQ. METER
     Route: 042
  4. PEGASPARGASE [Suspect]
     Active Substance: PEGASPARGASE
     Indication: Natural killer-cell leukaemia
     Dosage: 2 500 IU/M? (MAXIMUM DOSE IS 3 750 IU/M?),
     Route: 030
  5. RUXOLITINIB PHOSPHATE [Suspect]
     Active Substance: RUXOLITINIB PHOSPHATE
     Indication: Natural killer-cell leukaemia
     Dosage: 10 MILLIGRAM, BID
     Route: 048
  6. ETOPOSIDE [Suspect]
     Active Substance: ETOPOSIDE
     Indication: Natural killer-cell leukaemia
     Dosage: 100 MILLIGRAM/SQ. METER, WEEKLY
     Route: 042

REACTIONS (3)
  - Thrombocytopenia [Unknown]
  - Pneumonia [Unknown]
  - Neutropenia [Unknown]
